FAERS Safety Report 18376461 (Version 1)
Quarter: 2020Q4

REPORT INFORMATION
  Report Type: Report from Study
  Country: AU (occurrence: AU)
  Receive Date: 20201013
  Receipt Date: 20201013
  Transmission Date: 20210114
  Serious: Yes (Other)
  Sender: FDA-Public Use
  Company Number: AU-GLAXOSMITHKLINE-AU2020APC199216

PATIENT

DRUGS (1)
  1. MEPOLIZUMAB [Suspect]
     Active Substance: MEPOLIZUMAB
     Indication: ASTHMA
     Dosage: 100 MG, Z(EVERY 4 WEEK)
     Route: 058
     Dates: start: 20200714

REACTIONS (4)
  - Anaphylactic reaction [Recovered/Resolved]
  - Dyspnoea [Unknown]
  - Swollen tongue [Unknown]
  - Food intolerance [Unknown]

NARRATIVE: CASE EVENT DATE: 20201005
